FAERS Safety Report 22365729 (Version 2)
Quarter: 2023Q2

REPORT INFORMATION
  Report Type: Spontaneous
  Country: US (occurrence: US)
  Receive Date: 20230525
  Receipt Date: 20230604
  Transmission Date: 20230721
  Serious: Yes (Other)
  Sender: FDA-Public Use
  Company Number: US-TEVA-2023-US-2889327

PATIENT
  Age: 50 Year
  Sex: Female

DRUGS (7)
  1. ACARBOSE [Suspect]
     Active Substance: ACARBOSE
     Indication: Hypoglycaemia
     Route: 065
  2. OCTREOTIDE [Suspect]
     Active Substance: OCTREOTIDE
     Indication: Hypoglycaemia
     Dosage: 50 MCG SQ TWICE DAILY
     Route: 065
  3. OCTREOTIDE [Suspect]
     Active Substance: OCTREOTIDE
     Dosage: ADJUSTED TO 25 MCG AM AND 50 MCG PM
     Route: 065
  4. OCTREOTIDE [Suspect]
     Active Substance: OCTREOTIDE
     Dosage: 100 MICROGRAM DAILY;
     Route: 065
  5. LIRAGLUTIDE [Concomitant]
     Active Substance: LIRAGLUTIDE
     Indication: Hypoglycaemia
     Dosage: 0.6 MG SQ DAILY
     Route: 065
  6. LIRAGLUTIDE [Concomitant]
     Active Substance: LIRAGLUTIDE
     Dosage: 1.2 MILLIGRAM DAILY;
     Route: 065
  7. LIRAGLUTIDE [Concomitant]
     Active Substance: LIRAGLUTIDE
     Dosage: 1.8 MILLIGRAM DAILY;
     Route: 065

REACTIONS (2)
  - Gastrointestinal disorder [Recovered/Resolved]
  - Constipation [Recovered/Resolved]
